FAERS Safety Report 11837667 (Version 1)
Quarter: 2015Q4

REPORT INFORMATION
  Report Type: Spontaneous
  Country: US (occurrence: US)
  Receive Date: 20151215
  Receipt Date: 20151215
  Transmission Date: 20160305
  Serious: Yes (Hospitalization)
  Sender: FDA-Public Use
  Company Number: US-TEVA-617527USA

PATIENT
  Age: 17 Year
  Sex: Female

DRUGS (1)
  1. MINOCYCLINE [Suspect]
     Active Substance: MINOCYCLINE\MINOCYCLINE HYDROCHLORIDE
     Indication: ACNE
     Dosage: DOSAGE NOT STATED
     Route: 065

REACTIONS (3)
  - Vasculitis [Recovering/Resolving]
  - Neuropathy peripheral [Recovering/Resolving]
  - Brain stem infarction [Recovering/Resolving]
